FAERS Safety Report 18845150 (Version 1)
Quarter: 2021Q1

REPORT INFORMATION
  Report Type: Spontaneous
  Country: US (occurrence: US)
  Receive Date: 20210204
  Receipt Date: 20210204
  Transmission Date: 20210419
  Serious: No
  Sender: FDA-Public Use
  Company Number: None

PATIENT
  Age: 46 Year
  Sex: Female
  Weight: 120 kg

DRUGS (1)
  1. BAMLANIVIMAB 700MG/20ML [Suspect]
     Active Substance: BAMLANIVIMAB
     Indication: COVID-19
     Dates: start: 20210118

REACTIONS (3)
  - Product dispensing error [None]
  - Product preparation error [None]
  - Incorrect dose administered [None]

NARRATIVE: CASE EVENT DATE: 20210118
